FAERS Safety Report 4707944-1 (Version None)
Quarter: 2005Q3

REPORT INFORMATION
  Report Type: 
  Country: None (occurrence: None)
  Receive Date: 20050705
  Receipt Date: 20050705
  Transmission Date: 20060218
  Serious: Yes (Other)
  Sender: FDA-Public Use
  Company Number: None

PATIENT
  Age: 34 Year
  Sex: Female
  Weight: 52.1637 kg

DRUGS (4)
  1. OLANZAPINE [Suspect]
     Indication: AGITATION
     Dosage: 2.5MG   DAILY   ORAL
     Route: 048
     Dates: start: 20030101, end: 20050621
  2. OLANZAPINE [Suspect]
     Indication: HALLUCINATION
     Dosage: 2.5MG   DAILY   ORAL
     Route: 048
     Dates: start: 20030101, end: 20050621
  3. FLUVOXAMINE [Concomitant]
  4. VENLAFAXINE HCL [Concomitant]

REACTIONS (7)
  - ASTHENIA [None]
  - DIZZINESS [None]
  - FATIGUE [None]
  - HEADACHE [None]
  - INSOMNIA [None]
  - TENSION HEADACHE [None]
  - THINKING ABNORMAL [None]
